FAERS Safety Report 13742574 (Version 1)
Quarter: 2017Q3

REPORT INFORMATION
  Report Type: Spontaneous
  Country: US (occurrence: US)
  Receive Date: 20170711
  Receipt Date: 20170711
  Transmission Date: 20171127
  Serious: Yes (Hospitalization)
  Sender: FDA-Public Use
  Company Number: US-BAYER-2017-132697

PATIENT
  Age: 67 Year
  Sex: Female

DRUGS (1)
  1. CIPRO [Suspect]
     Active Substance: CIPROFLOXACIN HYDROCHLORIDE
     Dosage: 100 ML, UNK
     Route: 048
     Dates: start: 20170707

REACTIONS (1)
  - Overdose [None]

NARRATIVE: CASE EVENT DATE: 20170707
